FAERS Safety Report 5751717-8 (Version None)
Quarter: 2008Q2

REPORT INFORMATION
  Report Type: 
  Country: None (occurrence: None)
  Receive Date: 20080519
  Receipt Date: 20080502
  Transmission Date: 20081010
  Serious: Yes (Hospitalization, Other)
  Sender: FDA-Public Use
  Company Number: THYM-1000683

PATIENT
  Age: 60 Year
  Sex: Male
  Weight: 89.5 kg

DRUGS (33)
  1. THYMOGLOBULIN [Suspect]
     Indication: MYELODYSPLASTIC SYNDROME
     Dosage: 2.5 MG/KG, QD, INTRAVENOUS; 1 MG/M2, ONCE, INTRAVENOUS
     Route: 042
     Dates: start: 20080320, end: 20080320
  2. THYMOGLOBULIN [Suspect]
     Indication: MYELODYSPLASTIC SYNDROME
     Dosage: 2.5 MG/KG, QD, INTRAVENOUS; 1 MG/M2, ONCE, INTRAVENOUS
     Route: 042
     Dates: start: 20080321, end: 20080322
  3. CYTARABINE [Suspect]
     Indication: MYELODYSPLASTIC SYNDROME
     Dosage: 1 G/M2, QDX5, INTRAVENOUS
     Route: 042
     Dates: start: 20080318, end: 20080322
  4. CLOFARABINE (CLOFARABINE) [Suspect]
     Indication: MYELODYSPLASTIC SYNDROME
     Dosage: 40 MG/M2, QDX5, INTRAVENOUS
     Route: 042
     Dates: start: 20080318, end: 20080322
  5. DECITABINE (DECITABINE) [Concomitant]
  6. NORVASC [Concomitant]
  7. CEFEPIME [Concomitant]
  8. NEXIUM (ESOMEPRAZOLE SODIUM) [Concomitant]
  9. FLUCONAZOLE [Concomitant]
  10. FLONASE [Concomitant]
  11. COMPAZINE (PROCHLORPERAZINE MALEATE) [Concomitant]
  12. LASIX [Concomitant]
  13. LASIX [Concomitant]
  14. METOPROLOL TARTRATE [Concomitant]
  15. FLAGYL [Concomitant]
  16. FLOMAX [Concomitant]
  17. AMBIEN [Concomitant]
  18. AMBIEN [Concomitant]
  19. VALACYCLOVIR [Concomitant]
  20. VANCOMYCIN HYDROCHLORIDE [Concomitant]
  21. LORAZEPAM [Concomitant]
  22. MAGNESIUM SULFATE [Concomitant]
  23. MORPHINE [Concomitant]
  24. TACROLIMUS [Concomitant]
  25. LISINOPRIL (LISINOPRIL DIHYDRATE) [Concomitant]
  26. ATIVAN [Concomitant]
  27. OXYCODONE (OXYCODONE, PARACETAMOL) [Concomitant]
  28. CARVEDIOL (CARVEDILOL) [Concomitant]
  29. SEPTRA [Concomitant]
  30. ARANESP [Concomitant]
  31. BLOOD INFUSIONS [Concomitant]
  32. METHOTREXATE [Concomitant]
  33. VALTREX [Concomitant]

REACTIONS (10)
  - DIARRHOEA [None]
  - DILATATION VENTRICULAR [None]
  - EJECTION FRACTION ABNORMAL [None]
  - LIVER FUNCTION TEST ABNORMAL [None]
  - MUSCULOSKELETAL CHEST PAIN [None]
  - OEDEMA [None]
  - PERICARDIAL EFFUSION [None]
  - PLEURAL EFFUSION [None]
  - RASH [None]
  - TRICUSPID VALVE DISEASE [None]
